FAERS Safety Report 9205803 (Version 2)
Quarter: 2013Q2

REPORT INFORMATION
  Report Type: Spontaneous
  Country: US (occurrence: US)
  Receive Date: 20130403
  Receipt Date: 20130408
  Transmission Date: 20140414
  Serious: No
  Sender: FDA-Public Use
  Company Number: US-009507513-1303USA013110

PATIENT
  Age: 64 Year
  Sex: Male

DRUGS (5)
  1. VICTRELIS [Suspect]
     Indication: HEPATITIS C
     Dosage: 800 MG, Q8H
     Route: 048
     Dates: start: 2013
  2. PEGASYS [Suspect]
     Dosage: UNK
     Dates: start: 20130118
  3. RIBASPHERE [Suspect]
     Dosage: UNK
     Dates: start: 20130118
  4. TERAZOSIN HYDROCHLORIDE [Concomitant]
  5. LISINOPRIL [Concomitant]
     Route: 048

REACTIONS (1)
  - Vitreous floaters [Not Recovered/Not Resolved]
